FAERS Safety Report 11303207 (Version 2)
Quarter: 2015Q3

REPORT INFORMATION
  Report Type: Report from Study
  Country: MX (occurrence: MX)
  Receive Date: 20150723
  Receipt Date: 20150817
  Transmission Date: 20151125
  Serious: Yes (Disabling)
  Sender: FDA-Public Use
  Company Number: PHHY2012MX087496

PATIENT
  Age: 60 Year
  Sex: Female

DRUGS (4)
  1. CALCIUM [Concomitant]
     Active Substance: CALCIUM
     Indication: OSTEOPOROSIS
     Dosage: 1 DF, QD
     Route: 065
     Dates: start: 200705
  2. ACLASTA [Suspect]
     Active Substance: ZOLEDRONIC ACID
     Indication: OSTEOPENIA
     Dosage: 1 DF(5 MG/100 ML), Q12MO
     Route: 042
     Dates: start: 201109
  3. PIASCLEDINE                        /01305801/ [Concomitant]
     Indication: ARTHRITIS
     Dosage: 1 DF, QD
     Route: 065
     Dates: start: 200703
  4. GLUCOSAMINE W/CHONDROITIN [Concomitant]
     Active Substance: CHONDROITIN SULFATE A\GLUCOSAMINE
     Indication: DYSARTHRIA
     Dosage: 1 DF, QD (STARTED FROM 15 YEARS AGO)
     Route: 065
     Dates: start: 199804

REACTIONS (5)
  - Aphasia [Recovered/Resolved]
  - Body temperature increased [Recovered/Resolved]
  - Movement disorder [Recovered/Resolved]
  - Back pain [Recovered/Resolved]
  - Feeling abnormal [Recovered/Resolved]

NARRATIVE: CASE EVENT DATE: 201109
